FAERS Safety Report 5081527-9 (Version None)
Quarter: 2006Q3

REPORT INFORMATION
  Report Type: 
  Country: None (occurrence: None)
  Receive Date: 20060815
  Receipt Date: 20060815
  Transmission Date: 20061208
  Serious: Yes (Hospitalization)
  Sender: FDA-Public Use
  Company Number: None

PATIENT
  Sex: Male
  Weight: 71.7 kg

DRUGS (8)
  1. CARBAMAZEPINE [Suspect]
     Indication: IMPULSE-CONTROL DISORDER
     Dosage: 600 MG QAM, 400MG QPM PO
     Route: 048
     Dates: start: 20060721, end: 20060810
  2. CARBAMAZEPINE [Suspect]
     Indication: SELF INJURIOUS BEHAVIOUR
     Dosage: 600 MG QAM, 400MG QPM PO
     Route: 048
     Dates: start: 20060721, end: 20060810
  3. AMOXICILLIN [Concomitant]
  4. CLARITHROMYCIN [Concomitant]
  5. OLANZAPINE [Concomitant]
  6. LEVOTHYROXINE SODIUM [Concomitant]
  7. PANTOPRAZOLE SODIUM [Concomitant]
  8. CLOPIDOGREL [Concomitant]

REACTIONS (7)
  - BLOOD PRESSURE DECREASED [None]
  - DRUG LEVEL INCREASED [None]
  - FALL [None]
  - HEAD INJURY [None]
  - HELICOBACTER INFECTION [None]
  - LETHARGY [None]
  - SKIN LACERATION [None]
